FAERS Safety Report 6093349-0 (Version None)
Quarter: 2009Q1

REPORT INFORMATION
  Report Type: 
  Country: None (occurrence: None)
  Receive Date: 20090226
  Receipt Date: 20090218
  Transmission Date: 20090719
  Serious: Yes (Disabling)
  Sender: FDA-Public Use
  Company Number: US-ASTRAZENECA-2009UW04642

PATIENT
  Age: 55 Year
  Sex: Female

DRUGS (8)
  1. CRESTOR [Suspect]
     Route: 048
     Dates: end: 20090201
  2. TOPAMAX [Concomitant]
  3. MIRAPEX [Concomitant]
  4. SYNTHROID [Concomitant]
  5. NEXIUM [Concomitant]
     Route: 048
  6. TOPROL-XL [Concomitant]
     Route: 048
  7. AXERT [Concomitant]
  8. PREMARIN [Concomitant]

REACTIONS (4)
  - BLOOD CREATINE PHOSPHOKINASE INCREASED [None]
  - MUSCLE SPASMS [None]
  - PAIN [None]
  - RHABDOMYOLYSIS [None]
